FAERS Safety Report 7605191-7 (Version None)
Quarter: 2011Q3

REPORT INFORMATION
  Report Type: 
  Country: None (occurrence: None)
  Receive Date: 20110705
  Receipt Date: 20110627
  Transmission Date: 20111222
  Serious: Yes (Hospitalization)
  Sender: FDA-Public Use
  Company Number: 953340

PATIENT
  Age: 13 Year
  Sex: Male

DRUGS (1)
  1. METHOTREXATE [Suspect]
     Indication: JUVENILE ARTHRITIS
     Dosage: 5 MG WEEKLY

REACTIONS (4)
  - BLOOD BILIRUBIN INCREASED [None]
  - PLATELET COUNT INCREASED [None]
  - PSEUDOMEMBRANOUS COLITIS [None]
  - ARTHRALGIA [None]
